FAERS Safety Report 24530365 (Version 3)
Quarter: 2025Q1

REPORT INFORMATION
  Report Type: Spontaneous
  Country: CA (occurrence: CA)
  Receive Date: 20241021
  Receipt Date: 20250127
  Transmission Date: 20250408
  Serious: Yes (Other)
  Sender: TAKEDA
  Company Number: CA-TAKEDA-2024TUS104048

PATIENT
  Age: 30 Year
  Sex: Male

DRUGS (4)
  1. VYVANSE [Suspect]
     Active Substance: LISDEXAMFETAMINE DIMESYLATE
     Indication: Product used for unknown indication
  2. ESCITALOPRAM [Concomitant]
     Active Substance: ESCITALOPRAM OXALATE
  3. RYBELSUS [Concomitant]
     Active Substance: SEMAGLUTIDE
  4. MAGNESIUM [Concomitant]
     Active Substance: MAGNESIUM

REACTIONS (14)
  - Drug dependence [Recovering/Resolving]
  - Panic reaction [Recovering/Resolving]
  - Abdominal discomfort [Unknown]
  - Chest discomfort [Unknown]
  - Compulsions [Unknown]
  - Emotional distress [Unknown]
  - Lethargy [Unknown]
  - Musculoskeletal discomfort [Unknown]
  - Pain [Unknown]
  - Palpitations [Unknown]
  - Paranoia [Unknown]
  - Impaired work ability [Recovering/Resolving]
  - Food craving [Recovering/Resolving]
  - Fear [Recovering/Resolving]
